FAERS Safety Report 5062331-4 (Version None)
Quarter: 2006Q3

REPORT INFORMATION
  Report Type: 
  Country: None (occurrence: None)
  Receive Date: 20060721
  Receipt Date: 20060710
  Transmission Date: 20061208
  Serious: Yes (Hospitalization)
  Sender: FDA-Public Use
  Company Number: 2006086145

PATIENT
  Age: 45 Year
  Sex: Female
  Weight: 65 kg

DRUGS (2)
  1. SOMAVERT [Suspect]
     Indication: ACROMEGALY
     Dosage: 40 MG (40 MG, FIRST DAY), SUBCUTANEOUS
     Route: 058
     Dates: start: 20050517, end: 20050517
  2. LANREOTIDE (LANREOTIDE) [Suspect]
     Indication: ACROMEGALY
     Dates: end: 20050607

REACTIONS (16)
  - BLOOD GROWTH HORMONE DECREASED [None]
  - BLOOD GROWTH HORMONE INCREASED [None]
  - COUGH [None]
  - FATIGUE [None]
  - INSULIN-LIKE GROWTH FACTOR DECREASED [None]
  - INSULIN-LIKE GROWTH FACTOR INCREASED [None]
  - LARYNGEAL DYSPNOEA [None]
  - LARYNGITIS [None]
  - LARYNGOSPASM [None]
  - MUSCULOSKELETAL DISCOMFORT [None]
  - OEDEMA [None]
  - PARAESTHESIA [None]
  - PITUITARY TUMOUR BENIGN [None]
  - SPINAL DISORDER [None]
  - URTICARIA [None]
  - VOCAL CORD PARALYSIS [None]
